FAERS Safety Report 9920793 (Version 2)
Quarter: 2014Q1

REPORT INFORMATION
  Report Type: Spontaneous
  Country: US (occurrence: US)
  Receive Date: 20140224
  Receipt Date: 20140307
  Transmission Date: 20141002
  Serious: Yes (Hospitalization, Other)
  Sender: FDA-Public Use
  Company Number: US-009507513-1402USA010286

PATIENT
  Sex: Female

DRUGS (6)
  1. JANUMET [Suspect]
     Indication: TYPE 2 DIABETES MELLITUS
     Dosage: 1 TABLET, BID
     Route: 048
     Dates: start: 20120515
  2. ZETIA [Suspect]
     Dosage: 10 MG ONCE DAILY
     Route: 048
     Dates: start: 20111213
  3. GLIPIZIDE [Concomitant]
     Dosage: UNK
  4. DIOVAN [Concomitant]
     Dosage: UNK
  5. XANAX [Concomitant]
     Dosage: UNK
  6. ASPIRIN [Concomitant]
     Dosage: 81 MG

REACTIONS (2)
  - Diverticulitis [Recovered/Resolved]
  - Pancreatitis [Recovered/Resolved]
